APPROVED DRUG PRODUCT: PROCHLORPERAZINE EDISYLATE
Active Ingredient: PROCHLORPERAZINE EDISYLATE
Strength: EQ 5MG BASE/5ML
Dosage Form/Route: SYRUP;ORAL
Application: A088597 | Product #001
Applicant: MORTON GROVE PHARMACEUTICALS INC
Approved: Oct 25, 1984 | RLD: No | RS: No | Type: DISCN